FAERS Safety Report 5565947-1 (Version None)
Quarter: 2007Q4

REPORT INFORMATION
  Report Type: 
  Country: None (occurrence: None)
  Receive Date: 20071219
  Receipt Date: 20071213
  Transmission Date: 20080405
  Serious: Yes (Other)
  Sender: FDA-Public Use
  Company Number: PHNR2007AU01119

PATIENT
  Sex: Male

DRUGS (2)
  1. CAFERGOT [Suspect]
     Indication: MIGRAINE
     Dosage: 1 TABLET DAILY
     Route: 048
     Dates: start: 19990101
  2. AVAPRO [Concomitant]
     Indication: BLOOD PRESSURE INCREASED
     Dosage: 75 MG, UNK
     Dates: start: 20070619

REACTIONS (7)
  - BLOOD PRESSURE INCREASED [None]
  - DRUG INEFFECTIVE [None]
  - FATIGUE [None]
  - FEELING ABNORMAL [None]
  - HEADACHE [None]
  - MIGRAINE [None]
  - PROTEINURIA [None]
